FAERS Safety Report 15677650 (Version 3)
Quarter: 2019Q2

REPORT INFORMATION
  Report Type: Report from Study
  Country: JP (occurrence: JP)
  Receive Date: 20181130
  Receipt Date: 20190621
  Transmission Date: 20190711
  Serious: Yes (Life-Threatening, Hospitalization, Other)
  Sender: FDA-Public Use
  Company Number: PHJP2018JP020086

PATIENT
  Age: 68 Year
  Sex: Male

DRUGS (43)
  1. ARZERRA [Suspect]
     Active Substance: OFATUMUMAB
     Dosage: 2000 MG, UNK
     Route: 041
     Dates: start: 20171116
  2. DEXAMETHASONE. [Concomitant]
     Active Substance: DEXAMETHASONE
     Dosage: 4 MG, UNK
     Route: 065
     Dates: start: 20171013
  3. PARACETAMOL [Concomitant]
     Active Substance: ACETAMINOPHEN
     Dosage: 400 MG, UNK
     Route: 065
     Dates: start: 20171013
  4. PARACETAMOL [Concomitant]
     Active Substance: ACETAMINOPHEN
     Dosage: 400 MG, UNK
     Route: 065
     Dates: start: 20180122, end: 20180122
  5. POLARAMINE [Concomitant]
     Active Substance: DEXCHLORPHENIRAMINE MALEATE
     Dosage: 2 MG, UNK
     Route: 048
     Dates: start: 20180122, end: 20180122
  6. ARZERRA [Suspect]
     Active Substance: OFATUMUMAB
     Dosage: 2000 MG, UNK
     Route: 041
     Dates: start: 20171013
  7. ARZERRA [Suspect]
     Active Substance: OFATUMUMAB
     Dosage: 2000 MG, UNK
     Route: 041
     Dates: start: 20171110
  8. DEXAMETHASONE. [Concomitant]
     Active Substance: DEXAMETHASONE
     Dosage: 12 MG, UNK
     Route: 065
     Dates: start: 20171019
  9. DEXAMETHASONE. [Concomitant]
     Active Substance: DEXAMETHASONE
     Dosage: 12 MG, UNK
     Route: 065
     Dates: start: 20171221
  10. PARACETAMOL [Concomitant]
     Active Substance: ACETAMINOPHEN
     Indication: PREMEDICATION
     Dosage: 400 MG, UNK
     Route: 065
     Dates: start: 20170928
  11. PARACETAMOL [Concomitant]
     Active Substance: ACETAMINOPHEN
     Dosage: 400 MG, UNK
     Route: 065
     Dates: start: 20171019
  12. PARACETAMOL [Concomitant]
     Active Substance: ACETAMINOPHEN
     Dosage: 400 MG, UNK
     Route: 065
     Dates: start: 20171102
  13. POLARAMINE [Concomitant]
     Active Substance: DEXCHLORPHENIRAMINE MALEATE
     Dosage: 2 MG, UNK
     Route: 048
     Dates: start: 20171026
  14. POLARAMINE [Concomitant]
     Active Substance: DEXCHLORPHENIRAMINE MALEATE
     Dosage: 2 MG, UNK
     Route: 048
     Dates: start: 20171110
  15. POLARAMINE [Concomitant]
     Active Substance: DEXCHLORPHENIRAMINE MALEATE
     Dosage: 2 MG, UNK
     Route: 048
     Dates: start: 20171116
  16. DAIPHEN [Concomitant]
     Active Substance: SULFAMETHOXAZOLE\TRIMETHOPRIM
     Indication: INFECTION PROPHYLAXIS
     Dosage: 1 DF, UNK
     Route: 048
  17. PREDONINE [Concomitant]
     Active Substance: PREDNISOLONE
     Indication: CHRONIC MYELOID LEUKAEMIA
     Dosage: 5 MG, UNK
     Route: 048
  18. ARZERRA [Suspect]
     Active Substance: OFATUMUMAB
     Dosage: 2000 MG, UNK
     Route: 041
     Dates: start: 20171221
  19. DEXAMETHASONE. [Concomitant]
     Active Substance: DEXAMETHASONE
     Dosage: 12 MG, UNK
     Route: 065
     Dates: start: 20171110
  20. PARACETAMOL [Concomitant]
     Active Substance: ACETAMINOPHEN
     Dosage: 400 MG, UNK
     Route: 065
     Dates: start: 20171221
  21. POLARAMINE [Concomitant]
     Active Substance: DEXCHLORPHENIRAMINE MALEATE
     Dosage: 2 MG, UNK
     Route: 048
     Dates: start: 20171013
  22. POLARAMINE [Concomitant]
     Active Substance: DEXCHLORPHENIRAMINE MALEATE
     Dosage: 2 MG, UNK
     Route: 048
     Dates: start: 20171019
  23. POLARAMINE [Concomitant]
     Active Substance: DEXCHLORPHENIRAMINE MALEATE
     Dosage: 2 MG, UNK
     Route: 048
     Dates: start: 20171102
  24. ARZERRA [Suspect]
     Active Substance: OFATUMUMAB
     Dosage: 2000 MG, UNK
     Route: 041
     Dates: start: 20171026
  25. ARZERRA [Suspect]
     Active Substance: OFATUMUMAB
     Dosage: 2000 MG, UNK
     Route: 041
     Dates: start: 20180122, end: 20180122
  26. DEXAMETHASONE. [Concomitant]
     Active Substance: DEXAMETHASONE
     Dosage: 12 MG, UNK
     Route: 065
     Dates: start: 20171026
  27. DEXAMETHASONE. [Concomitant]
     Active Substance: DEXAMETHASONE
     Dosage: 12 MG, UNK
     Route: 065
     Dates: start: 20171116
  28. DEXAMETHASONE. [Concomitant]
     Active Substance: DEXAMETHASONE
     Dosage: 12 MG, UNK
     Route: 065
     Dates: start: 20180122, end: 20180122
  29. PARACETAMOL [Concomitant]
     Active Substance: ACETAMINOPHEN
     Dosage: 400 MG, UNK
     Route: 065
     Dates: start: 20171110
  30. PARACETAMOL [Concomitant]
     Active Substance: ACETAMINOPHEN
     Dosage: 400 MG, UNK
     Route: 065
     Dates: start: 20171116
  31. POLARAMINE [Concomitant]
     Active Substance: DEXCHLORPHENIRAMINE MALEATE
     Dosage: 2 MG, UNK
     Route: 048
     Dates: start: 20171221
  32. ACICLOVIR [Concomitant]
     Active Substance: ACYCLOVIR
     Indication: INFECTION PROPHYLAXIS
     Dosage: 200 MG, UNK
     Route: 048
  33. ARZERRA [Suspect]
     Active Substance: OFATUMUMAB
     Dosage: 2000 MG, UNK
     Route: 041
     Dates: start: 20171019
  34. DEXAMETHASONE. [Concomitant]
     Active Substance: DEXAMETHASONE
     Indication: PREMEDICATION
     Dosage: 16 MG, UNK
     Route: 065
     Dates: start: 20170928
  35. DEXAMETHASONE. [Concomitant]
     Active Substance: DEXAMETHASONE
     Dosage: 12 MG, UNK
     Route: 065
     Dates: start: 20171102
  36. POLARAMINE [Concomitant]
     Active Substance: DEXCHLORPHENIRAMINE MALEATE
     Dosage: 2 MG, UNK
     Route: 048
     Dates: start: 20171006
  37. ARZERRA [Suspect]
     Active Substance: OFATUMUMAB
     Dosage: 2000 MG, UNK
     Route: 041
     Dates: start: 20171006
  38. ARZERRA [Suspect]
     Active Substance: OFATUMUMAB
     Dosage: 2000 MG, UNK
     Route: 041
     Dates: start: 20171102
  39. PARACETAMOL [Concomitant]
     Active Substance: ACETAMINOPHEN
     Dosage: 400 MG, UNK
     Route: 065
     Dates: start: 20171006
  40. PARACETAMOL [Concomitant]
     Active Substance: ACETAMINOPHEN
     Dosage: 400 MG, UNK
     Route: 065
     Dates: start: 20171026
  41. ARZERRA [Suspect]
     Active Substance: OFATUMUMAB
     Indication: CHRONIC LYMPHOCYTIC LEUKAEMIA
     Dosage: 300 MG, UNK
     Route: 041
     Dates: start: 20170928
  42. DEXAMETHASONE. [Concomitant]
     Active Substance: DEXAMETHASONE
     Dosage: 16 MG, UNK
     Route: 065
     Dates: start: 20171006
  43. POLARAMINE [Concomitant]
     Active Substance: DEXCHLORPHENIRAMINE MALEATE
     Indication: PREMEDICATION
     Dosage: 2 MG, UNK
     Route: 048
     Dates: start: 20170928

REACTIONS (8)
  - Pyrexia [Recovering/Resolving]
  - Chills [Recovered/Resolved]
  - Dyspnoea [Recovered/Resolved]
  - Chills [Recovered/Resolved]
  - Pyrexia [Recovered/Resolved]
  - Chills [Recovered/Resolved]
  - Pyrexia [Recovered/Resolved]
  - Laryngeal oedema [Recovered/Resolved]

NARRATIVE: CASE EVENT DATE: 20170928
